FAERS Safety Report 15927701 (Version 3)
Quarter: 2020Q1

REPORT INFORMATION
  Report Type: Spontaneous
  Country: US (occurrence: US)
  Receive Date: 20190205
  Receipt Date: 20200129
  Transmission Date: 20200409
  Serious: No
  Sender: FDA-Public Use
  Company Number: US-ALLERGAN-1858240US

PATIENT
  Age: 30 Year

DRUGS (1)
  1. BOTOX [Suspect]
     Active Substance: ONABOTULINUMTOXINA
     Indication: SKIN WRINKLING
     Dosage: 20 UNITS, SINGLE
     Route: 030

REACTIONS (5)
  - Drug ineffective [Unknown]
  - Pain [Unknown]
  - Product storage error [Unknown]
  - Erythema [Recovering/Resolving]
  - Swelling [Recovering/Resolving]
